FAERS Safety Report 8390024-4 (Version None)
Quarter: 2012Q2

REPORT INFORMATION
  Report Type: 
  Country: None (occurrence: None)
  Receive Date: 20120529
  Receipt Date: 20120516
  Transmission Date: 20120825
  Serious: Yes (Disabling)
  Sender: FDA-Public Use
  Company Number: US-SANOFI-AVENTIS-2012SA025522

PATIENT
  Age: 71 Year
  Sex: Female
  Weight: 127.27 kg

DRUGS (8)
  1. LANTUS [Suspect]
     Dosage: 40/50
     Route: 058
     Dates: start: 20120401
  2. SOLOSTAR [Suspect]
     Indication: DIABETES MELLITUS
  3. SOLOSTAR [Suspect]
  4. LANTUS [Suspect]
     Dosage: 40/50
     Route: 058
     Dates: start: 20120401
  5. LANTUS [Suspect]
     Dosage: UNKNOWN AMOUNT IN THE MORNING
     Route: 058
     Dates: start: 20120401, end: 20120416
  6. NOVOLOG [Concomitant]
     Indication: DIABETES MELLITUS
     Dosage: SLIDING SCALE
  7. VICTOZA [Concomitant]
  8. LANTUS [Suspect]
     Indication: DIABETES MELLITUS
     Dosage: UNKNOWN AMOUNT IN THE MORNING
     Route: 058
     Dates: start: 20120401, end: 20120416

REACTIONS (4)
  - VISUAL IMPAIRMENT [None]
  - CATARACT [None]
  - ARTHROPATHY [None]
  - BLOOD GLUCOSE INCREASED [None]
